FAERS Safety Report 20804145 (Version 1)
Quarter: 2022Q2

REPORT INFORMATION
  Report Type: Spontaneous
  Country: US (occurrence: US)
  Receive Date: 20220509
  Receipt Date: 20220509
  Transmission Date: 20220721
  Serious: No
  Sender: FDA-Public Use
  Company Number: US-PFIZER INC-202101133668

PATIENT
  Age: 68 Year
  Sex: Male
  Weight: 61.23 kg

DRUGS (4)
  1. VYNDAMAX [Interacting]
     Active Substance: TAFAMIDIS
     Indication: Amyloidosis
     Dosage: 61 MG, 1X/DAY
     Dates: start: 20210831
  2. FUROSEMIDE [Interacting]
     Active Substance: FUROSEMIDE
     Indication: Fluid retention
     Dosage: 20 MG, 1X/DAY
  3. FUROSEMIDE [Interacting]
     Active Substance: FUROSEMIDE
     Indication: Peripheral swelling
  4. ROSUVASTATIN [Interacting]
     Active Substance: ROSUVASTATIN
     Dosage: 10 MG, 1X/DAY

REACTIONS (2)
  - Drug interaction [Unknown]
  - Off label use [Unknown]
